FAERS Safety Report 7532247-X (Version None)
Quarter: 2011Q2

REPORT INFORMATION
  Report Type: 
  Country: None (occurrence: None)
  Receive Date: 20110601
  Receipt Date: 20110519
  Transmission Date: 20111010
  Serious: Yes (Hospitalization, Other)
  Sender: FDA-Public Use
  Company Number: 2011001934

PATIENT
  Age: 76 Year
  Sex: Male
  Weight: 76 kg

DRUGS (2)
  1. GDC-449 [Suspect]
     Indication: ADENOCARCINOMA PANCREAS
     Dosage: 150 MG, UID/QD, ORAL
     Route: 048
     Dates: start: 20110207, end: 20110404
  2. ERLOTINIB (ERLOTINIB HYDROCHLORIDE) TABLET [Suspect]
     Indication: ADENOCARCINOMA PANCREAS
     Dosage: 150MG, UID/QD, ORAL
     Route: 048
     Dates: start: 20110207, end: 20110419

REACTIONS (12)
  - BLOOD BILIRUBIN INCREASED [None]
  - ILEUS [None]
  - ANXIETY [None]
  - CONSTIPATION [None]
  - DIARRHOEA [None]
  - LIPASE INCREASED [None]
  - PANCREATITIS [None]
  - BLOOD ALKALINE PHOSPHATASE INCREASED [None]
  - DISEASE PROGRESSION [None]
  - METASTASES TO LIVER [None]
  - PULMONARY EMBOLISM [None]
  - ABDOMINAL PAIN [None]
